FAERS Safety Report 5491704-0 (Version None)
Quarter: 2007Q4

REPORT INFORMATION
  Report Type: 
  Country: None (occurrence: None)
  Receive Date: 20071018
  Receipt Date: 20071005
  Transmission Date: 20080405
  Serious: Yes (Hospitalization)
  Sender: FDA-Public Use
  Company Number: 2007S1009869

PATIENT
  Age: 61 Year
  Sex: Female

DRUGS (3)
  1. VERAPAMIL [Suspect]
     Dosage: 360 MG; DAILY
  2. PROPRANOLOL HYDROCHLORIDE [Suspect]
     Dosage: 10 MG; Q6H
  3. CAPTOPRIL [Suspect]
     Dosage: 25 MG; TWICE A ADY

REACTIONS (11)
  - ASTHENIA [None]
  - DIARRHOEA [None]
  - DIZZINESS [None]
  - DYSPNOEA [None]
  - EXTRASYSTOLES [None]
  - FATIGUE [None]
  - HYPERHIDROSIS [None]
  - NAUSEA [None]
  - NODAL RHYTHM [None]
  - SINUS BRADYCARDIA [None]
  - VOMITING [None]
